FAERS Safety Report 5621223-X (Version None)
Quarter: 2008Q1

REPORT INFORMATION
  Report Type: 
  Country: None (occurrence: None)
  Receive Date: 20080114
  Receipt Date: 20070215
  Transmission Date: 20080703
  Serious: Yes (Hospitalization)
  Sender: FDA-Public Use
  Company Number: A03200701371

PATIENT
  Sex: Male

DRUGS (5)
  1. PLAVIX [Suspect]
     Indication: CORONARY ARTERY BYPASS
     Dosage: 75 MG QD-ORAL
     Route: 048
     Dates: start: 20030101, end: 20070206
  2. EZETIMIBE [Concomitant]
  3. ATORVASTATIN CALCIUM [Concomitant]
  4. ACETYLSALICYLIC ACID SRT [Concomitant]
  5. VITAMINS [Concomitant]

REACTIONS (5)
  - ABDOMINAL PAIN UPPER [None]
  - GASTROINTESTINAL HAEMORRHAGE [None]
  - HAEMATEMESIS [None]
  - LETHARGY [None]
  - NAUSEA [None]
